FAERS Safety Report 4911255-9 (Version None)
Quarter: 2006Q1

REPORT INFORMATION
  Report Type: 
  Country: None (occurrence: None)
  Receive Date: 20060113
  Receipt Date: 20051006
  Transmission Date: 20060701
  Serious: Yes (Other)
  Sender: FDA-Public Use
  Company Number: HQWYE933510OCT05

PATIENT
  Sex: Female

DRUGS (9)
  1. PREMPRO [Suspect]
     Indication: HORMONE REPLACEMENT THERAPY
  2. CLIMARA [Suspect]
  3. CYCRIN [Suspect]
  4. ESTRACE [Suspect]
  5. OGEN [Suspect]
  6. PREMARIN [Suspect]
  7. PROMETRIUM [Suspect]
  8. PROVERA [Suspect]
  9. ESTRADERM [Suspect]

REACTIONS (1)
  - BREAST CANCER [None]
